FAERS Safety Report 5496356-1 (Version None)
Quarter: 2007Q4

REPORT INFORMATION
  Report Type: 
  Country: None (occurrence: None)
  Receive Date: 20071025
  Receipt Date: 20070828
  Transmission Date: 20080405
  Serious: No
  Sender: FDA-Public Use
  Company Number: A0645222A

PATIENT
  Age: 29 Year
  Sex: Male

DRUGS (5)
  1. ADVAIR DISKUS 100/50 [Suspect]
     Indication: ASTHMA
     Dosage: 1PUFF TWICE PER DAY
     Route: 055
     Dates: start: 20060801, end: 20070707
  2. RIBAVIRIN [Concomitant]
  3. PEGASYS [Concomitant]
  4. SPIRIVA [Concomitant]
  5. SINGULAIR [Concomitant]

REACTIONS (5)
  - ASTHENIA [None]
  - CHEST DISCOMFORT [None]
  - DRUG INEFFECTIVE [None]
  - DYSPNOEA [None]
  - PHARMACEUTICAL PRODUCT COMPLAINT [None]
